FAERS Safety Report 5839516-X (Version None)
Quarter: 2008Q3

REPORT INFORMATION
  Report Type: 
  Country: None (occurrence: None)
  Receive Date: 20080807
  Receipt Date: 20080724
  Transmission Date: 20090109
  Serious: Yes (Other)
  Sender: FDA-Public Use
  Company Number: 2008S1000222

PATIENT
  Age: 61 Year
  Sex: Male
  Weight: 86.002 kg

DRUGS (3)
  1. ACITRETIN [Suspect]
     Indication: RASH PUSTULAR
     Dosage: QD; PO
     Route: 048
     Dates: start: 20020101, end: 20080101
  2. METICORTEN TAB [Suspect]
     Indication: RASH PUSTULAR
     Dates: start: 20050101, end: 20050101
  3. TYLENOL (CAPLET) [Concomitant]

REACTIONS (6)
  - ALANINE AMINOTRANSFERASE INCREASED [None]
  - ASPARTATE AMINOTRANSFERASE INCREASED [None]
  - CATARACT [None]
  - CONDITION AGGRAVATED [None]
  - NO THERAPEUTIC RESPONSE [None]
  - RASH PUSTULAR [None]
